FAERS Safety Report 22063405 (Version 3)
Quarter: 2023Q1

REPORT INFORMATION
  Report Type: Report from Study
  Country: MX (occurrence: MX)
  Receive Date: 20230306
  Receipt Date: 20230307
  Transmission Date: 20230418
  Serious: Yes (Disabling)
  Sender: FDA-Public Use
  Company Number: MX-002147023-NVSC2023MX050401

PATIENT
  Age: 78 Year
  Sex: Male
  Weight: 50 kg

DRUGS (3)
  1. EXELON [Suspect]
     Active Substance: RIVASTIGMINE TARTRATE
     Indication: Parkinson^s disease
     Dosage: 1 DOSAGE FORM, QD
     Route: 062
     Dates: start: 202201
  2. EXELON [Suspect]
     Active Substance: RIVASTIGMINE TARTRATE
     Indication: Dementia
  3. LEVODOPA [Suspect]
     Active Substance: LEVODOPA
     Indication: Parkinson^s disease
     Dosage: UNK (ROUTE: NASOGASTRIC)
     Route: 065
     Dates: start: 2020

REACTIONS (4)
  - Dysphagia [Unknown]
  - Lack of spontaneous speech [Not Recovered/Not Resolved]
  - Weight increased [Unknown]
  - Off label use [Not Recovered/Not Resolved]
